FAERS Safety Report 10734542 (Version 2)
Quarter: 2015Q1

REPORT INFORMATION
  Report Type: Report from Study
  Country: US (occurrence: US)
  Receive Date: 20150123
  Receipt Date: 20150123
  Transmission Date: 20150721
  Serious: No
  Sender: FDA-Public Use
  Company Number: US-AMGEN INC.-2014-0588

PATIENT
  Age: 68 Year
  Sex: Female

DRUGS (4)
  1. DECADRON [Concomitant]
     Active Substance: DEXAMETHASONE
     Indication: PLASMA CELL MYELOMA
     Route: 042
  2. KYPROLIS [Suspect]
     Active Substance: CARFILZOMIB
     Indication: PLASMA CELL MYELOMA
     Route: 042
     Dates: start: 201309, end: 201406
  3. KYPROLIS [Suspect]
     Active Substance: CARFILZOMIB
     Dosage: FREQ. TEXT: 2 IN 1 WEEK, 2 WEEKS ON, 2 WEEKS OFF?
     Route: 042
     Dates: start: 20140619, end: 20140815
  4. REVLIMID [Concomitant]
     Active Substance: LENALIDOMIDE
     Indication: PRODUCT USED FOR UNKNOWN INDICATION
     Dosage: FREQ. TEXT: DAILY, 7 DAYS ON 7 DAYS OFF?

REACTIONS (5)
  - Fatigue [Not Recovered/Not Resolved]
  - Platelet count decreased [Not Recovered/Not Resolved]
  - Haemoglobin decreased [Recovered/Resolved]
  - Asthenia [Unknown]
  - Disease progression [Unknown]

NARRATIVE: CASE EVENT DATE: 2014
